FAERS Safety Report 9660649 (Version 2)
Quarter: 2013Q4

REPORT INFORMATION
  Report Type: Spontaneous
  Country: US (occurrence: US)
  Receive Date: 20131031
  Receipt Date: 20131031
  Transmission Date: 20140711
  Serious: Yes (Hospitalization, Other)
  Sender: FDA-Public Use
  Company Number: US-GILEAD-2013-0084738

PATIENT
  Sex: Male

DRUGS (5)
  1. LETAIRIS [Suspect]
     Indication: PULMONARY HYPERTENSION
     Dosage: 10 MG, UNK
     Route: 048
     Dates: start: 20120209
  2. LETAIRIS [Suspect]
     Indication: HEART DISEASE CONGENITAL
  3. LETAIRIS [Suspect]
     Indication: RESPIRATORY FAILURE
  4. LETAIRIS [Suspect]
     Indication: TETRALOGY OF FALLOT REPAIR
  5. LETAIRIS [Suspect]
     Indication: PULMONARY ARTERIAL PRESSURE INCREASED

REACTIONS (1)
  - Pulmonary valve replacement [Unknown]
